FAERS Safety Report 6005037-7 (Version None)
Quarter: 2008Q4

REPORT INFORMATION
  Report Type: 
  Country: None (occurrence: None)
  Receive Date: 20081216
  Receipt Date: 20081027
  Transmission Date: 20090506
  Serious: No
  Sender: FDA-Public Use
  Company Number: US-BAUSCH-2008BL004641

PATIENT
  Age: 22 Year
  Sex: Female
  Weight: 54 kg

DRUGS (1)
  1. NEOMYCIN AND POLYMXIN B SULFATES AND HYDROCORTISONE [Suspect]
     Route: 047
     Dates: start: 20081010, end: 20081010

REACTIONS (6)
  - DRUG DISPENSING ERROR [None]
  - EYE IRRITATION [None]
  - EYE PAIN [None]
  - INCORRECT ROUTE OF DRUG ADMINISTRATION [None]
  - KERATOCONJUNCTIVITIS SICCA [None]
  - MEDICATION ERROR [None]
